FAERS Safety Report 5239742-7 (Version None)
Quarter: 2007Q1

REPORT INFORMATION
  Report Type: 
  Country: None (occurrence: None)
  Receive Date: 20070214
  Receipt Date: 20070214
  Transmission Date: 20070707
  Serious: Yes (Hospitalization)
  Sender: FDA-Public Use
  Company Number: None

PATIENT
  Age: 79 Year
  Sex: Male

DRUGS (15)
  1. ZOSYN [Suspect]
     Indication: NOSOCOMIAL INFECTION
     Dates: start: 20061014, end: 20061015
  2. ZOSYN [Suspect]
     Indication: SEPSIS
     Dates: start: 20061014, end: 20061015
  3. ACETAMINOPHEN [Concomitant]
  4. ALBUTEROL [Concomitant]
  5. ASPIRIN [Concomitant]
  6. CARVEDILOL [Concomitant]
  7. CITALOPRAM HYDROBROMIDE [Concomitant]
  8. FUROSEMIDE [Concomitant]
  9. HEPARIN [Concomitant]
  10. HUMULIN R [Concomitant]
  11. REGULAR INSULIN [Concomitant]
  12. CHLORIDE [Concomitant]
  13. IPRATROPIUM BR [Concomitant]
  14. LABETALOL HCL [Concomitant]
  15. LEVOTHYROXINE SODIUM [Concomitant]

REACTIONS (2)
  - SEPSIS [None]
  - THROMBOCYTOPENIA [None]
